FAERS Safety Report 20664624 (Version 1)
Quarter: 2022Q2

REPORT INFORMATION
  Report Type: Spontaneous
  Country: CA (occurrence: CA)
  Receive Date: 20220401
  Receipt Date: 20220401
  Transmission Date: 20220721
  Serious: Yes (Other)
  Sender: FDA-Public Use
  Company Number: CA-PFIZER INC-202200482777

PATIENT
  Age: 67 Year
  Sex: Female

DRUGS (2)
  1. METHOTREXATE SODIUM [Suspect]
     Active Substance: METHOTREXATE SODIUM
     Dosage: UNK
     Dates: end: 202112
  2. FOLIC ACID [Suspect]
     Active Substance: FOLIC ACID
     Dosage: UNK
     Dates: end: 202112

REACTIONS (1)
  - Liver injury [Not Recovered/Not Resolved]
